FAERS Safety Report 9778142 (Version 2)
Quarter: 2014Q1

REPORT INFORMATION
  Report Type: Report from Study
  Country: GB (occurrence: GB)
  Receive Date: 20131223
  Receipt Date: 20140320
  Transmission Date: 20141002
  Serious: Yes (Death, Other)
  Sender: FDA-Public Use
  Company Number: GB-ROCHE-1321493

PATIENT
  Age: 85 Year
  Sex: Female

DRUGS (2)
  1. RANIBIZUMAB [Suspect]
     Indication: AGE-RELATED MACULAR DEGENERATION
     Dosage: MOST RECENT DOSE PRIOR TO EVENT: 04/SEP/2013
     Route: 050
     Dates: start: 20100630
  2. RANIBIZUMAB [Suspect]
     Route: 050
     Dates: start: 20130904

REACTIONS (11)
  - Breast cancer [Fatal]
  - Metastases to lung [Unknown]
  - Pleural effusion [Unknown]
  - Lymphangiosis carcinomatosa [Unknown]
  - Hilar lymphadenopathy [Unknown]
  - Invasive lobular breast carcinoma [Unknown]
  - Lymphadenopathy [Unknown]
  - Hepatic necrosis [Unknown]
  - Bone disorder [Unknown]
  - Renal cyst [Unknown]
  - Spinal osteoarthritis [Unknown]
